FAERS Safety Report 7512404-9 (Version None)
Quarter: 2011Q2

REPORT INFORMATION
  Report Type: 
  Country: None (occurrence: None)
  Receive Date: 20110520
  Receipt Date: 20110512
  Transmission Date: 20111010
  Serious: Yes (Other)
  Sender: FDA-Public Use
  Company Number: GER/GER/11/0018302

PATIENT
  Sex: Female

DRUGS (3)
  1. LAMOTRIGINE [Suspect]
     Indication: BORDERLINE PERSONALITY DISORDER
     Dosage: ORAL
     Route: 048
  2. FLUOXETINE HCL [Suspect]
     Indication: OBSESSIVE-COMPULSIVE DISORDER
     Dosage: ORAL
     Route: 048
  3. FEMIBION SCHWANGERSCHAFT 1 (CALCIUM) [Concomitant]

REACTIONS (3)
  - ABORTION MISSED [None]
  - PREGNANCY [None]
  - DRUG EXPOSURE DURING PREGNANCY [None]
